FAERS Safety Report 5590158-3 (Version None)
Quarter: 2008Q1

REPORT INFORMATION
  Report Type: 
  Country: None (occurrence: None)
  Receive Date: 20080114
  Receipt Date: 20070607
  Transmission Date: 20080703
  Serious: No
  Sender: FDA-Public Use
  Company Number: US-ABBOTT-07P-163-0371708-00

PATIENT
  Sex: Male
  Weight: 7.718 kg

DRUGS (1)
  1. OMNICEF ORAL SUSPENSION [Suspect]
     Indication: DRUG USE FOR UNKNOWN INDICATION
     Route: 048
     Dates: start: 20070522, end: 20070530

REACTIONS (1)
  - HAEMATOCHEZIA [None]
